FAERS Safety Report 14090588 (Version 2)
Quarter: 2017Q4

REPORT INFORMATION
  Report Type: Spontaneous
  Country: FR (occurrence: FR)
  Receive Date: 20171015
  Receipt Date: 20171031
  Transmission Date: 20180321
  Serious: Yes (Death)
  Sender: FDA-Public Use
  Company Number: FR-ALSI-201700330

PATIENT
  Sex: Male

DRUGS (2)
  1. OXYGEN MEDICINAL [Suspect]
     Active Substance: OXYGEN
     Indication: PRODUCT USED FOR UNKNOWN INDICATION
     Route: 055
  2. OXYGEN. [Suspect]
     Active Substance: OXYGEN
     Route: 055

REACTIONS (2)
  - Intentional overdose [Fatal]
  - Death [Fatal]
